FAERS Safety Report 5083217-5 (Version None)
Quarter: 2006Q3

REPORT INFORMATION
  Report Type: 
  Country: None (occurrence: None)
  Receive Date: 20060816
  Receipt Date: 20060816
  Transmission Date: 20061208
  Serious: Yes (Hospitalization)
  Sender: FDA-Public Use
  Company Number: None

PATIENT
  Age: 79 Year
  Sex: Male
  Weight: 75 kg

DRUGS (8)
  1. OXALIPLATIN [Suspect]
     Indication: MALIGNANT NEOPLASM OF AMPULLA OF VATER
     Dosage: 130MG/M2 IV Q3WKS
     Route: 042
     Dates: start: 20060615
  2. OXALIPLATIN [Suspect]
     Indication: MALIGNANT NEOPLASM OF AMPULLA OF VATER
     Dosage: 130MG/M2 IV Q3WKS
     Route: 042
     Dates: start: 20060707
  3. OXALIPLATIN [Suspect]
     Indication: MALIGNANT NEOPLASM OF AMPULLA OF VATER
     Dosage: 130MG/M2 IV Q3WKS
     Route: 042
     Dates: start: 20060728
  4. XELODA [Suspect]
     Dosage: 1500 MG/M2 PO DAY 1-14
     Route: 048
     Dates: start: 20060615
  5. DIAZEPAM [Concomitant]
  6. PHENYTOIN [Concomitant]
  7. LOVENOX [Concomitant]
  8. PROTONIX [Concomitant]

REACTIONS (1)
  - PYREXIA [None]
